FAERS Safety Report 18315355 (Version 2)
Quarter: 2022Q1

REPORT INFORMATION
  Report Type: Report from Study
  Country: CA (occurrence: CA)
  Receive Date: 20200926
  Receipt Date: 20220106
  Transmission Date: 20220424
  Serious: Yes (Hospitalization)
  Sender: FDA-Public Use
  Company Number: None

PATIENT
  Age: 33 Year
  Sex: Male

DRUGS (22)
  1. METHOTREXATE [Suspect]
     Active Substance: METHOTREXATE
     Indication: Product used for unknown indication
     Dosage: 1 EVERY 1 WEEKS
     Route: 048
  2. ENTYVIO [Suspect]
     Active Substance: VEDOLIZUMAB
     Indication: Colitis ulcerative
     Dosage: POWDER FOR SOLUTION INTRAVENOUS, ALSO RECEIVED 300.0 MG
     Route: 042
  3. ACETAMINOPHEN AND CODEINE [Concomitant]
     Active Substance: ACETAMINOPHEN\CODEINE PHOSPHATE
     Dosage: 1 EVERY 8 HOURS, 3 EVERY 1 DAYS
  4. AZATHIOPRINE [Concomitant]
     Active Substance: AZATHIOPRINE
     Dosage: 1 EVERY 1 DAYS
  5. PREDNISONE [Concomitant]
     Active Substance: PREDNISONE
     Dosage: ALSO RECEIVED 20.0 MG 1 EVERY 1 DAYS
     Route: 048
  6. Betnesol [Concomitant]
  7. CALCIUM CARBONATE [Concomitant]
     Active Substance: CALCIUM CARBONATE
     Dosage: 2 EVERY 1 DAYS
  8. CALCIUM CITRATE [Concomitant]
     Active Substance: CALCIUM CITRATE
     Dosage: 2 EVERY 1 DAYS
  9. CORTIFOAM [Concomitant]
     Active Substance: HYDROCORTISONE ACETATE
     Dosage: AEROSOL, FOAM, 1 EVERY 1 DAYS
  10. Cortiment [Concomitant]
     Dosage: 1 EVERY 1 DAYS
  11. FOLIC ACID [Concomitant]
     Active Substance: FOLIC ACID
     Dosage: 1 EVERY 1 DAYS
     Route: 048
  12. HYDROCORTISONE [Concomitant]
     Active Substance: HYDROCORTISONE
  13. INFLIXIMAB [Concomitant]
     Active Substance: INFLIXIMAB
     Dosage: 1 EVERY 8 WEEKS
     Route: 042
  14. LOPERAMIDE [Concomitant]
     Active Substance: LOPERAMIDE
     Dosage: 4 EVERY 1 DAYS
     Route: 048
  15. MESALAMINE [Concomitant]
     Active Substance: MESALAMINE
     Dosage: 1 EVERY 1 DAYS, TABLET (DELAYED AND EXTENDED RELEASE)
     Route: 048
  16. PSYLLIUM HUSK [Concomitant]
     Active Substance: PSYLLIUM HUSK
     Dosage: 1 EVERY 1 DAYS AND 2 EVERY 1 DAYS
     Route: 048
  17. Salofalk [Concomitant]
     Dosage: 1 EVERY 1 DAYS
  18. VENTOLIN [Concomitant]
     Active Substance: ALBUTEROL SULFATE
     Route: 050
  19. VITAMIN D NOS [Concomitant]
     Active Substance: VITAMIN D NOS
     Dosage: 1 EVERY 1 DAYS
     Route: 048
  20. BUDESONIDE [Concomitant]
     Active Substance: BUDESONIDE
     Dosage: 1 EVERY 1 DAYS
  21. MESALAMINE [Concomitant]
     Active Substance: MESALAMINE
     Dosage: 1 EVERY 1 DAYS
  22. ALBUTEROL SULFATE [Concomitant]
     Active Substance: ALBUTEROL SULFATE

REACTIONS (4)
  - Alanine aminotransferase increased [Unknown]
  - Headache [Unknown]
  - Colitis ulcerative [Unknown]
  - Dyspnoea [Unknown]
